FAERS Safety Report 18588949 (Version 1)
Quarter: 2020Q4

REPORT INFORMATION
  Report Type: Spontaneous
  Country: CN (occurrence: CN)
  Receive Date: 20201207
  Receipt Date: 20201207
  Transmission Date: 20210114
  Serious: Yes (Other)
  Sender: FDA-Public Use
  Company Number: CN-ROCHE-2727714

PATIENT
  Age: 54 Year
  Sex: Female
  Weight: 46.3 kg

DRUGS (8)
  1. AVASTIN [Suspect]
     Active Substance: BEVACIZUMAB
     Route: 041
     Dates: start: 20201107
  2. PACLITAXEL. [Suspect]
     Active Substance: PACLITAXEL
     Indication: FALLOPIAN TUBE CANCER METASTATIC
     Route: 041
     Dates: start: 20200925
  3. DOCETAXEL. [Concomitant]
     Active Substance: DOCETAXEL
     Dates: start: 20201107
  4. DOCETAXEL. [Concomitant]
     Active Substance: DOCETAXEL
     Indication: FALLOPIAN TUBE CANCER METASTATIC
     Dates: start: 20200925
  5. AVASTIN [Suspect]
     Active Substance: BEVACIZUMAB
     Indication: FALLOPIAN TUBE CANCER METASTATIC
     Route: 041
     Dates: start: 20200925
  6. PACLITAXEL. [Suspect]
     Active Substance: PACLITAXEL
     Route: 041
     Dates: start: 20201107
  7. CARBOPLATIN. [Suspect]
     Active Substance: CARBOPLATIN
     Indication: FALLOPIAN TUBE CANCER METASTATIC
     Route: 041
     Dates: start: 20200925
  8. CARBOPLATIN. [Suspect]
     Active Substance: CARBOPLATIN
     Route: 041
     Dates: start: 20201107

REACTIONS (3)
  - Myelosuppression [Recovering/Resolving]
  - Intentional product use issue [Unknown]
  - Off label use [Unknown]
